FAERS Safety Report 20373599 (Version 1)
Quarter: 2022Q1

REPORT INFORMATION
  Report Type: Spontaneous
  Country: US (occurrence: US)
  Receive Date: 20220125
  Receipt Date: 20220125
  Transmission Date: 20220423
  Serious: No
  Sender: FDA-Public Use
  Company Number: US-ALLERGAN-2114922US

PATIENT
  Sex: Female
  Weight: 47.166 kg

DRUGS (1)
  1. BYSTOLIC [Suspect]
     Active Substance: NEBIVOLOL HYDROCHLORIDE
     Indication: Heart rate increased
     Dosage: 5 MG, QD
     Dates: start: 202001

REACTIONS (2)
  - Weight decreased [Unknown]
  - Insomnia [Not Recovered/Not Resolved]
